FAERS Safety Report 13533145 (Version 2)
Quarter: 2017Q3

REPORT INFORMATION
  Report Type: Spontaneous
  Country: US (occurrence: US)
  Receive Date: 20170510
  Receipt Date: 20170731
  Transmission Date: 20171127
  Serious: Yes (Other)
  Sender: FDA-Public Use
  Company Number: US-JNJFOC-20170502410

PATIENT
  Sex: Female

DRUGS (2)
  1. XARELTO [Suspect]
     Active Substance: RIVAROXABAN
     Indication: PULMONARY EMBOLISM
     Route: 048
  2. XARELTO [Suspect]
     Active Substance: RIVAROXABAN
     Indication: PULMONARY EMBOLISM
     Route: 048
     Dates: start: 201701

REACTIONS (19)
  - Spinal pain [Not Recovered/Not Resolved]
  - Blood pressure decreased [Unknown]
  - Headache [Unknown]
  - Memory impairment [Unknown]
  - Nasal congestion [Unknown]
  - Concussion [Unknown]
  - Thrombosis [Unknown]
  - Abscess [Unknown]
  - Chronic obstructive pulmonary disease [Unknown]
  - Asthma [Unknown]
  - Dizziness [Unknown]
  - Dehydration [Unknown]
  - Anal incontinence [Not Recovered/Not Resolved]
  - Oedema peripheral [Unknown]
  - Urinary incontinence [Not Recovered/Not Resolved]
  - Epistaxis [Unknown]
  - Asthenia [Unknown]
  - Chest pain [Unknown]
  - Heart rate decreased [Unknown]

NARRATIVE: CASE EVENT DATE: 2017
